FAERS Safety Report 18582697 (Version 1)
Quarter: 2020Q4

REPORT INFORMATION
  Report Type: Report from Study
  Country: AR (occurrence: AR)
  Receive Date: 20201205
  Receipt Date: 20201205
  Transmission Date: 20210114
  Serious: Yes (Other)
  Sender: FDA-Public Use
  Company Number: AR-TAKEDA-2020TUS049650

PATIENT
  Age: 2 Year
  Sex: Male

DRUGS (1)
  1. IDURSULFASE [Suspect]
     Active Substance: IDURSULFASE
     Indication: PRODUCT USED FOR UNKNOWN INDICATION
     Dosage: UNK UNK, 1/WEEK
     Route: 050

REACTIONS (6)
  - Adenoidectomy [Recovered/Resolved]
  - Stress [Unknown]
  - Diarrhoea [Not Recovered/Not Resolved]
  - Tonsillectomy [Unknown]
  - Crying [Unknown]
  - Ear tube insertion [Recovered/Resolved]

NARRATIVE: CASE EVENT DATE: 20201103
